FAERS Safety Report 8603297-7 (Version None)
Quarter: 2012Q3

REPORT INFORMATION
  Report Type: 
  Country: None (occurrence: None)
  Receive Date: 20120817
  Receipt Date: 20120813
  Transmission Date: 20120928
  Serious: Yes (Death, Life-Threatening, Hospitalization, Disabling, Other)
  Sender: FDA-Public Use
  Company Number: SE-ASTRAZENECA-2012SE57042

PATIENT
  Age: 30605 Day
  Sex: Female

DRUGS (6)
  1. BRILINTA [Suspect]
     Indication: ACUTE MYOCARDIAL INFARCTION
     Dosage: 180 MG LOADING DOSE
     Route: 048
     Dates: start: 20120810
  2. ANGIOMAX [Suspect]
     Route: 042
     Dates: start: 20120810, end: 20120810
  3. SIMVASTATIN [Concomitant]
     Indication: ACUTE MYOCARDIAL INFARCTION
     Route: 048
     Dates: start: 20120810, end: 20120811
  4. RAMIPRIL [Concomitant]
     Indication: HYPERTENSION
     Route: 048
     Dates: start: 20120810, end: 20120811
  5. ISORBIDMONONITRAT [Concomitant]
     Indication: ANGINA PECTORIS
     Route: 048
     Dates: start: 20120810, end: 20120811
  6. ASPIRIN [Suspect]
     Indication: ACUTE MYOCARDIAL INFARCTION
     Route: 048
     Dates: start: 20120810, end: 20120810

REACTIONS (1)
  - CEREBRAL HAEMATOMA [None]
